FAERS Safety Report 5917421-8 (Version None)
Quarter: 2008Q4

REPORT INFORMATION
  Report Type: 
  Country: None (occurrence: None)
  Receive Date: 20081014
  Receipt Date: 20081007
  Transmission Date: 20090506
  Serious: Yes (Hospitalization)
  Sender: FDA-Public Use
  Company Number: B0540491A

PATIENT
  Age: 51 Year
  Sex: Male

DRUGS (2)
  1. SERETIDE [Suspect]
     Indication: ASTHMA
     Dosage: 2PUFF TWICE PER DAY
     Route: 055
     Dates: start: 20080701
  2. VENTOLIN [Suspect]
     Indication: ASTHMA
     Dosage: 100MCG AS REQUIRED
     Route: 055
     Dates: start: 20080701

REACTIONS (5)
  - ASTHMA [None]
  - DYSPNOEA [None]
  - LOWER RESPIRATORY TRACT INFECTION [None]
  - MALAISE [None]
  - NOCTURNAL DYSPNOEA [None]
